FAERS Safety Report 9910069 (Version 2)
Quarter: 2014Q1

REPORT INFORMATION
  Report Type: Spontaneous
  Country: US (occurrence: US)
  Receive Date: 20140219
  Receipt Date: 20140219
  Transmission Date: 20141002
  Serious: No
  Sender: FDA-Public Use
  Company Number: US-GILEAD-2012-0055613

PATIENT
  Sex: Male

DRUGS (1)
  1. LETAIRIS [Suspect]
     Indication: PULMONARY HYPERTENSION
     Dosage: 5 MG, UNK
     Route: 048
     Dates: start: 20120504, end: 20120530

REACTIONS (11)
  - Musculoskeletal chest pain [Unknown]
  - Abdominal discomfort [Unknown]
  - Flatulence [Unknown]
  - Heart rate irregular [Unknown]
  - Unevaluable event [Unknown]
  - Chest pain [Unknown]
  - Abdominal distension [Unknown]
  - Catheterisation cardiac [Unknown]
  - Flatulence [Unknown]
  - Local swelling [Unknown]
  - Abdominal pain upper [Unknown]
